FAERS Safety Report 14277914 (Version 1)
Quarter: 2017Q4

REPORT INFORMATION
  Report Type: Spontaneous
  Country: IN (occurrence: IN)
  Receive Date: 20171212
  Receipt Date: 20171212
  Transmission Date: 20180321
  Serious: Yes (Hospitalization)
  Sender: FDA-Public Use
  Company Number: IN-FERRINGPH-2017FE06094

PATIENT

DRUGS (2)
  1. DESMOPRESSIN [Suspect]
     Active Substance: DESMOPRESSIN
     Dosage: 10 ?G, 2 TIMES DAILY
     Route: 045
  2. DESMOPRESSIN [Suspect]
     Active Substance: DESMOPRESSIN
     Indication: DIABETES INSIPIDUS
     Dosage: 10 ?G, 1 TIME DAILY, AT NIGHT
     Route: 045

REACTIONS (2)
  - Osmotic demyelination syndrome [Not Recovered/Not Resolved]
  - Therapeutic response increased [Not Recovered/Not Resolved]
